FAERS Safety Report 6905905-5 (Version None)
Quarter: 2010Q3

REPORT INFORMATION
  Report Type: 
  Country: None (occurrence: None)
  Receive Date: 20100804
  Receipt Date: 20100727
  Transmission Date: 20110219
  Serious: Yes (Hospitalization)
  Sender: FDA-Public Use
  Company Number: FR-ROCHE-717954

PATIENT
  Sex: Female

DRUGS (10)
  1. ROACTEMRA [Suspect]
     Indication: RHEUMATOID ARTHRITIS
     Dosage: FORM: INFUSION
     Route: 042
     Dates: start: 20100507, end: 20100507
  2. ROACTEMRA [Suspect]
     Route: 042
     Dates: start: 20100607, end: 20100607
  3. METHOTREXATE [Concomitant]
     Dosage: DOSE: 7 TABLETS/ WEEK
  4. PREDNISONE [Concomitant]
  5. POTASSIUM [Concomitant]
  6. AMITRIPTYLINE HYDROCHLORIDE [Concomitant]
     Dosage: DRUG REPORTED AS AMITRYPTILINE
  7. ALENDRONIC ACID [Concomitant]
     Dosage: DOSE: 70 MG/ WEEK
  8. LANSOPRAZOLE [Concomitant]
  9. METOPROLOL [Concomitant]
     Dosage: DOSE REPORTED AS 1/ DAY; DRUG REPORTED AS METOPROLOL LP
  10. PARACETAMOL [Concomitant]

REACTIONS (6)
  - BALANCE DISORDER [None]
  - CARDIAC ARREST [None]
  - CARDIAC DISORDER [None]
  - CHEST PAIN [None]
  - FALL [None]
  - MALAISE [None]
